FAERS Safety Report 5942472-7 (Version None)
Quarter: 2008Q4

REPORT INFORMATION
  Report Type: 
  Country: None (occurrence: None)
  Receive Date: 20081105
  Receipt Date: 20081024
  Transmission Date: 20090506
  Serious: Yes (Other)
  Sender: FDA-Public Use
  Company Number: NL-PFIZER INC-2008088563

PATIENT
  Sex: Male
  Weight: 72 kg

DRUGS (9)
  1. NEURONTIN [Suspect]
     Route: 048
     Dates: start: 20081002
  2. ARIXTRA [Concomitant]
  3. ACENOCOUMAROL [Concomitant]
  4. TRAMADOL HCL [Concomitant]
  5. TEMAZEPAM [Concomitant]
  6. BUPRENORPHINE HCL [Concomitant]
  7. HYDROXYZINE [Concomitant]
  8. DYAZIDE [Concomitant]
  9. PANTOZOL [Concomitant]

REACTIONS (4)
  - ANGIOEDEMA [None]
  - SWELLING FACE [None]
  - SWOLLEN TONGUE [None]
  - URTICARIA [None]
